FAERS Safety Report 15458370 (Version 1)
Quarter: 2018Q3

REPORT INFORMATION
  Report Type: Spontaneous
  Country: US (occurrence: US)
  Receive Date: 20180929
  Receipt Date: 20180929
  Transmission Date: 20181010
  Serious: No
  Sender: FDA-Public Use
  Company Number: None

PATIENT

DRUGS (1)
  1. NOVOCAINE [Suspect]
     Active Substance: PROCAINE

REACTIONS (1)
  - Hypersensitivity [None]
